FAERS Safety Report 9407356 (Version 2)
Quarter: 2013Q3

REPORT INFORMATION
  Report Type: Spontaneous
  Country: US (occurrence: US)
  Receive Date: 20130718
  Receipt Date: 20130829
  Transmission Date: 20140515
  Serious: Yes (Hospitalization)
  Sender: FDA-Public Use
  Company Number: US-NOVOPROD-382813

PATIENT
  Age: 58 Year
  Sex: Male

DRUGS (5)
  1. VICTOZA [Suspect]
     Indication: TYPE 2 DIABETES MELLITUS
     Dosage: 0.6 MG DAILY
     Route: 058
     Dates: start: 201010
  2. VICTOZA [Suspect]
     Dosage: 1.2 MG QD FOR 18 MONTHS
     Route: 058
  3. VICTOZA [Suspect]
     Dosage: 0.6 MG DAILY
     Route: 058
     Dates: end: 201301
  4. ACTOPLUS MET [Concomitant]
     Indication: TYPE 2 DIABETES MELLITUS
     Dosage: UNK
  5. GLYBURIDE [Concomitant]
     Indication: TYPE 2 DIABETES MELLITUS
     Dosage: UNK

REACTIONS (2)
  - Pancreatic carcinoma stage III [Recovered/Resolved]
  - Pancreatitis chronic [Recovered/Resolved]
